FAERS Safety Report 16697716 (Version 1)
Quarter: 2019Q3

REPORT INFORMATION
  Report Type: Report from Study
  Country: NO (occurrence: NO)
  Receive Date: 20190813
  Receipt Date: 20190813
  Transmission Date: 20191004
  Serious: Yes (Other)
  Sender: FDA-Public Use
  Company Number: NO-ROCHE-2375736

PATIENT
  Weight: 4.09 kg

DRUGS (1)
  1. DIAZEPAM. [Suspect]
     Active Substance: DIAZEPAM
     Indication: PRODUCT USED FOR UNKNOWN INDICATION
     Route: 064

REACTIONS (3)
  - Apgar score low [Recovered/Resolved]
  - Neonatal aspiration [Recovered/Resolved]
  - Foetal exposure during pregnancy [Unknown]
